FAERS Safety Report 21303014 (Version 1)
Quarter: 2022Q3

REPORT INFORMATION
  Report Type: Spontaneous
  Country: CN (occurrence: CN)
  Receive Date: 20220907
  Receipt Date: 20220907
  Transmission Date: 20221026
  Serious: Yes (Other)
  Sender: FDA-Public Use
  Company Number: CN-BAYER-2022A124455

PATIENT
  Age: 62 Year
  Sex: Male

DRUGS (1)
  1. ULTRAVIST [Suspect]
     Active Substance: IOPROMIDE
     Dosage: UNK UNK, ONCE
     Dates: start: 20220816, end: 20220816

REACTIONS (6)
  - Blood pressure decreased [Recovering/Resolving]
  - Oxygen saturation decreased [Recovering/Resolving]
  - Miliaria [Recovering/Resolving]
  - Vision blurred [Recovering/Resolving]
  - Conjunctival hyperaemia [Recovering/Resolving]
  - Conjunctival oedema [Recovering/Resolving]

NARRATIVE: CASE EVENT DATE: 20220816
